FAERS Safety Report 22174221 (Version 2)
Quarter: 2023Q2

REPORT INFORMATION
  Report Type: Report from Study
  Country: HU (occurrence: HU)
  Receive Date: 20230405
  Receipt Date: 20230408
  Transmission Date: 20230721
  Serious: Yes (Death)
  Sender: FDA-Public Use
  Company Number: HU-002147023-NVSC2023HU078163

PATIENT
  Age: 82 Year
  Sex: Female

DRUGS (2)
  1. TAFINLAR [Suspect]
     Active Substance: DABRAFENIB MESYLATE
     Indication: Malignant melanoma
     Dosage: UNK
     Route: 065
  2. MEKINIST [Suspect]
     Active Substance: TRAMETINIB DIMETHYL SULFOXIDE
     Indication: Malignant melanoma
     Dosage: UNK
     Route: 065

REACTIONS (2)
  - Malignant melanoma [Fatal]
  - Malignant neoplasm progression [Fatal]
